FAERS Safety Report 25962701 (Version 1)
Quarter: 2025Q4

REPORT INFORMATION
  Report Type: Report from Study
  Country: US (occurrence: US)
  Receive Date: 20251027
  Receipt Date: 20251027
  Transmission Date: 20260118
  Serious: No
  Sender: MIRUM PHARMACEUTICALS
  Company Number: US-MIRUM PHARMACEUTICALS, INC.-US-MIR-25-00746

PATIENT

DRUGS (2)
  1. LIVMARLI [Suspect]
     Active Substance: MARALIXIBAT CHLORIDE
     Indication: Alagille syndrome
     Dosage: UNK
     Route: 065
     Dates: start: 202111, end: 202508
  2. LIVMARLI [Suspect]
     Active Substance: MARALIXIBAT CHLORIDE
     Dosage: 0.5 MILLILITER, QD
     Route: 065
     Dates: start: 202508

REACTIONS (3)
  - Liver function test abnormal [Unknown]
  - Splenomegaly [Unknown]
  - Intentional underdose [Unknown]

NARRATIVE: CASE EVENT DATE: 20250801
